FAERS Safety Report 15974348 (Version 2)
Quarter: 2019Q1

REPORT INFORMATION
  Report Type: Report from Study
  Country: KR (occurrence: KR)
  Receive Date: 20190218
  Receipt Date: 20190221
  Transmission Date: 20190418
  Serious: Yes (Hospitalization)
  Sender: FDA-Public Use
  Company Number: KR-ROCHE-2264330

PATIENT
  Age: 37 Year
  Sex: Female

DRUGS (5)
  1. COBIMETINIB. [Suspect]
     Active Substance: COBIMETINIB
     Indication: BREAST CANCER
     Dosage: MOST RECENT DOSE (60 MG) 31/JAN/2019
     Route: 048
     Dates: start: 20190111
  2. BEVACIZUMAB. [Suspect]
     Active Substance: BEVACIZUMAB
     Indication: BREAST CANCER
     Dosage: MOST RECENT DOSE ON 11/JAN/2019
     Route: 042
     Dates: start: 20190111
  3. DIOCTAHEDRAL SMECTITE [Concomitant]
  4. ATEZOLIZUMAB. [Suspect]
     Active Substance: ATEZOLIZUMAB
     Indication: BREAST CANCER
     Dosage: MOST RECENT DOSE (1200 MG) ON 11/JAN/2019
     Route: 042
     Dates: start: 20190111
  5. LOPERAMIDE HCL [Concomitant]
     Active Substance: LOPERAMIDE HYDROCHLORIDE

REACTIONS (1)
  - Colitis [Recovered/Resolved]

NARRATIVE: CASE EVENT DATE: 20190205
